FAERS Safety Report 6244081-1 (Version None)
Quarter: 2009Q2

REPORT INFORMATION
  Report Type: 
  Country: None (occurrence: None)
  Receive Date: 20090625
  Receipt Date: 20090624
  Transmission Date: 20091009
  Serious: Yes (Life-Threatening, Hospitalization)
  Sender: FDA-Public Use
  Company Number: FR-BRISTOL-MYERS SQUIBB COMPANY-14642664

PATIENT
  Age: 23 Year
  Sex: Female
  Weight: 77 kg

DRUGS (4)
  1. ORENCIA [Suspect]
     Indication: RHEUMATOID ARTHRITIS
     Dates: start: 20090420
  2. COTAREG [Concomitant]
     Indication: HYPERTENSION
  3. SOLUPRED [Concomitant]
     Indication: RHEUMATOID ARTHRITIS
  4. METOJECT [Concomitant]
     Dates: start: 20080401

REACTIONS (1)
  - MYOCARDIAL INFARCTION [None]
